FAERS Safety Report 26096409 (Version 1)
Quarter: 2025Q4

REPORT INFORMATION
  Report Type: Spontaneous
  Country: EU (occurrence: EU)
  Receive Date: 20251127
  Receipt Date: 20251127
  Transmission Date: 20260117
  Serious: Yes (Other)
  Sender: TEVA
  Company Number: None

PATIENT
  Age: 22 Year
  Sex: Male

DRUGS (2)
  1. DOXORUBICIN [Suspect]
     Active Substance: DOXORUBICIN
     Indication: Congenital retinoblastoma
     Dosage: DOXORUBICIN HYDROCHLORIDE
     Route: 042
     Dates: start: 200612, end: 200702
  2. DOXORUBICIN [Suspect]
     Active Substance: DOXORUBICIN
     Indication: Congenital retinoblastoma
     Route: 042
     Dates: start: 20250606, end: 20250808

REACTIONS (1)
  - Ventricular dysfunction [Not Recovered/Not Resolved]

NARRATIVE: CASE EVENT DATE: 20250902
